FAERS Safety Report 16150525 (Version 2)
Quarter: 2020Q2

REPORT INFORMATION
  Report Type: Spontaneous
  Country: US (occurrence: US)
  Receive Date: 20190402
  Receipt Date: 20200624
  Transmission Date: 20200713
  Serious: No
  Sender: FDA-Public Use
  Company Number: US-ACTELION-A-NJ2019-187049

PATIENT
  Sex: Female

DRUGS (1)
  1. OPSUMIT [Suspect]
     Active Substance: MACITENTAN
     Indication: PULMONARY ARTERIAL HYPERTENSION
     Dosage: 10 MG, QD
     Route: 048
     Dates: start: 20170420, end: 20200608

REACTIONS (4)
  - Eye pruritus [Not Recovered/Not Resolved]
  - Hypotension [Unknown]
  - Eye discharge [Unknown]
  - Nasal congestion [Not Recovered/Not Resolved]
